FAERS Safety Report 4930037-5 (Version None)
Quarter: 2006Q1

REPORT INFORMATION
  Report Type: 
  Country: None (occurrence: None)
  Receive Date: 20060302
  Receipt Date: 20060220
  Transmission Date: 20060701
  Serious: Yes (Other)
  Sender: FDA-Public Use
  Company Number: PHEH2006US02323

PATIENT
  Age: 78 Year
  Sex: Female

DRUGS (16)
  1. AREDIA [Suspect]
     Indication: METASTASES TO BONE
     Dosage: 90 MG, QMO
     Dates: start: 20000501, end: 20020108
  2. AREDIA [Suspect]
     Dosage: 90 MG, QMO
     Dates: start: 20040225
  3. ZOMETA [Suspect]
     Indication: METASTASES TO BONE
     Dosage: 4 MG, QMO
     Dates: start: 20020208, end: 20031209
  4. NEURONTIN [Concomitant]
     Route: 048
  5. DILAUDID [Concomitant]
     Route: 048
  6. KYTRIL [Concomitant]
  7. ASACOL [Concomitant]
  8. GLYBURIDE [Concomitant]
  9. SYNTHROID [Concomitant]
  10. IRON [Concomitant]
  11. ACTOS [Concomitant]
  12. NEXIUM [Concomitant]
  13. ALLOPURINOL [Concomitant]
  14. LASIX [Concomitant]
  15. TAXOTERE [Concomitant]
  16. HERCEPTIN [Concomitant]

REACTIONS (16)
  - BONE DEBRIDEMENT [None]
  - BONE DISORDER [None]
  - BONE LESION [None]
  - HEADACHE [None]
  - HYPOAESTHESIA [None]
  - IMPAIRED HEALING [None]
  - IRRITABILITY [None]
  - LYMPHADENOPATHY [None]
  - MASTICATION DISORDER [None]
  - ORAL PAIN [None]
  - OSTEOMYELITIS [None]
  - OSTEONECROSIS [None]
  - TEETH BRITTLE [None]
  - TOOTH EXTRACTION [None]
  - TOOTHACHE [None]
  - WOUND DEHISCENCE [None]
